FAERS Safety Report 9392112 (Version 1)
Quarter: 2013Q3

REPORT INFORMATION
  Report Type: Spontaneous
  Country: CA (occurrence: CA)
  Receive Date: 20130709
  Receipt Date: 20130709
  Transmission Date: 20140515
  Serious: Yes (Hospitalization)
  Sender: FDA-Public Use
  Company Number: CA-009507513-1307CAN003544

PATIENT
  Age: 29 Year
  Sex: Male

DRUGS (1)
  1. VICTRELIS TRIPLE [Suspect]
     Indication: PRODUCT USED FOR UNKNOWN INDICATION
     Dosage: 150 MICROGRAM, UNK
     Route: 065

REACTIONS (1)
  - Thrombosis [Unknown]
